FAERS Safety Report 8789948 (Version 1)
Quarter: 2012Q4

REPORT INFORMATION
  Report Type: 
  Country: JP (occurrence: JP)
  Receive Date: 20120917
  Receipt Date: 20120917
  Transmission Date: 20130627
  Serious: Yes (Other)
  Sender: FDA-Public Use
  Company Number: JP-009507513-1209JPN004125

PATIENT

DRUGS (1)
  1. PROPECIA TABLETS 1MG [Suspect]
     Route: 048

REACTIONS (1)
  - Renal cancer [Unknown]
